FAERS Safety Report 7659157-1 (Version None)
Quarter: 2011Q3

REPORT INFORMATION
  Report Type: 
  Country: None (occurrence: None)
  Receive Date: 20110805
  Receipt Date: 20110801
  Transmission Date: 20111222
  Serious: Yes (Hospitalization)
  Sender: FDA-Public Use
  Company Number: FR-GLAXOSMITHKLINE-B0736205A

PATIENT
  Sex: Male

DRUGS (5)
  1. ACETAMINOPHEN [Concomitant]
     Dosage: 3G PER DAY
     Route: 048
  2. TRAMADOL HCL [Suspect]
     Dosage: 100MG TWICE PER DAY
     Route: 048
     Dates: end: 20100630
  3. KETOPROFEN [Concomitant]
     Route: 048
  4. ONDANSERTRON HYDROCHLORIDE [Suspect]
     Route: 048
     Dates: end: 20100630
  5. FORLAX [Concomitant]
     Route: 048

REACTIONS (4)
  - ABDOMINAL PAIN LOWER [None]
  - PYREXIA [None]
  - VOMITING [None]
  - SUBILEUS [None]
